FAERS Safety Report 9751707 (Version 1)
Quarter: 2013Q4

REPORT INFORMATION
  Report Type: Spontaneous
  Country: US (occurrence: US)
  Receive Date: 20131213
  Receipt Date: 20131213
  Transmission Date: 20140711
  Serious: No
  Sender: FDA-Public Use
  Company Number: US-009507513-1312USA002747

PATIENT
  Age: 67 Year
  Sex: Female

DRUGS (4)
  1. AZASITE [Suspect]
     Indication: INTRAOCULAR PRESSURE TEST
     Dosage: ONE DROP AROUND EACH EYE AND ON THE EYE LID, ONCE DAILY
     Route: 047
     Dates: start: 201308
  2. AZASITE [Suspect]
     Indication: ERYTHEMA OF EYELID
  3. DORZOLAMIDE HYDROCHLORIDE [Suspect]
     Dosage: TWO DROPS IN EACH EYE/ ONCE DAILY
     Route: 049
  4. LUMIGAN [Concomitant]
     Dosage: ONE DROP IN EACH EYE/ ONCE DAILY

REACTIONS (6)
  - Eye pain [Not Recovered/Not Resolved]
  - Ocular hyperaemia [Not Recovered/Not Resolved]
  - Drug dose omission [Not Recovered/Not Resolved]
  - Product quality issue [Not Recovered/Not Resolved]
  - Off label use [Not Recovered/Not Resolved]
  - Overdose [Not Recovered/Not Resolved]
